FAERS Safety Report 8469740-1 (Version None)
Quarter: 2012Q2

REPORT INFORMATION
  Report Type: 
  Country: None (occurrence: None)
  Receive Date: 20120626
  Receipt Date: 20120621
  Transmission Date: 20120825
  Serious: No
  Sender: FDA-Public Use
  Company Number: US-PFIZER INC-2012150152

PATIENT
  Sex: Female
  Weight: 66.213 kg

DRUGS (2)
  1. CHANTIX [Suspect]
     Dosage: 0.5 MG, 2X/DAY
     Route: 048
     Dates: start: 20120618, end: 20120618
  2. CHANTIX [Suspect]
     Indication: SMOKING CESSATION THERAPY
     Dosage: 0.5 MG, 1X/DAY
     Route: 048
     Dates: start: 20120615, end: 20120617

REACTIONS (6)
  - WEIGHT INCREASED [None]
  - MALAISE [None]
  - VOMITING [None]
  - NAUSEA [None]
  - ABDOMINAL DISCOMFORT [None]
  - HEADACHE [None]
